FAERS Safety Report 9131516 (Version 1)
Quarter: 2013Q1

REPORT INFORMATION
  Report Type: Spontaneous
  Country: US (occurrence: US)
  Receive Date: 20130301
  Receipt Date: 20130301
  Transmission Date: 20140127
  Serious: Yes (Other)
  Sender: FDA-Public Use
  Company Number: US-AMGEN-USASP2013013215

PATIENT
  Age: 59 Year
  Sex: Female

DRUGS (1)
  1. ENBREL [Suspect]
     Indication: RHEUMATOID ARTHRITIS
     Dosage: 50 MG, WEEKLY
     Dates: start: 20120621

REACTIONS (4)
  - Vaginal haemorrhage [Not Recovered/Not Resolved]
  - Rectocele [Not Recovered/Not Resolved]
  - Cystocele [Not Recovered/Not Resolved]
  - Micturition urgency [Not Recovered/Not Resolved]
